FAERS Safety Report 17853830 (Version 1)
Quarter: 2020Q2

REPORT INFORMATION
  Report Type: Spontaneous
  Country: US (occurrence: US)
  Receive Date: 20200603
  Receipt Date: 20200603
  Transmission Date: 20200714
  Serious: No
  Sender: FDA-Public Use
  Company Number: NVSC2020US154219

PATIENT
  Age: 83 Year

DRUGS (1)
  1. VOLTAREN [Suspect]
     Active Substance: DICLOFENAC SODIUM
     Indication: ARTHRITIS
     Dosage: UNK (USED IT FOR MAYBE 2 OR 3 DAYS)
     Route: 065

REACTIONS (3)
  - Expired product administered [Unknown]
  - Therapeutic product effect incomplete [Unknown]
  - Product administered at inappropriate site [Unknown]
